FAERS Safety Report 10287156 (Version 2)
Quarter: 2016Q2

REPORT INFORMATION
  Report Type: Spontaneous
  Country: US (occurrence: US)
  Receive Date: 20140709
  Receipt Date: 20160530
  Transmission Date: 20160815
  Serious: Yes (Life-Threatening, Other)
  Sender: FDA-Public Use
  Company Number: US-JNJFOC-20140618487

PATIENT

DRUGS (1)
  1. HALOPERIDOL. [Suspect]
     Active Substance: HALOPERIDOL
     Indication: PRODUCT USED FOR UNKNOWN INDICATION
     Route: 030

REACTIONS (5)
  - Arrhythmia [Unknown]
  - Blood pressure systolic decreased [Unknown]
  - Mechanical ventilation [Unknown]
  - Endotracheal intubation [Unknown]
  - Electrocardiogram QT prolonged [Unknown]
